FAERS Safety Report 8517797-1 (Version None)
Quarter: 2012Q3

REPORT INFORMATION
  Report Type: 
  Country: None (occurrence: None)
  Receive Date: 20120718
  Receipt Date: 20120716
  Transmission Date: 20120928
  Serious: Yes (Other)
  Sender: FDA-Public Use
  Company Number: US-PFIZER INC-2008023824

PATIENT
  Sex: Female
  Weight: 68.027 kg

DRUGS (7)
  1. SIMVASTATIN [Concomitant]
     Indication: BLOOD CHOLESTEROL ABNORMAL
  2. LOVASTATIN [Concomitant]
     Indication: BLOOD CHOLESTEROL INCREASED
     Dosage: LESS THAN 25 MG DAILY AT NIGHT
  3. CLONAZEPAM [Concomitant]
  4. LYRICA [Suspect]
     Indication: FIBROMYALGIA
     Dosage: 150 MG, 2X/DAY
     Route: 048
     Dates: start: 20080101, end: 20080101
  5. OMEPRAZOLE [Concomitant]
  6. LYRICA [Suspect]
     Dosage: 75 MG, DAILY
     Route: 048
     Dates: start: 20080101, end: 20080401
  7. EFFEXOR [Concomitant]
     Indication: DEPRESSION
     Dosage: 150MG AT ONE TIME; 75MG AT ANOTHER TIME

REACTIONS (7)
  - DRUG INEFFECTIVE [None]
  - PAIN [None]
  - THYROID DISORDER [None]
  - WEIGHT INCREASED [None]
  - DIZZINESS [None]
  - HEADACHE [None]
  - DERMATITIS ALLERGIC [None]
